FAERS Safety Report 18504269 (Version 6)
Quarter: 2021Q1

REPORT INFORMATION
  Report Type: Spontaneous
  Country: CA (occurrence: CA)
  Receive Date: 20201113
  Receipt Date: 20210302
  Transmission Date: 20210419
  Serious: Yes (Other)
  Sender: FDA-Public Use
  Company Number: CA-CELLTRION INC.-2019CA021578

PATIENT

DRUGS (26)
  1. INFLECTRA [Suspect]
     Active Substance: INFLIXIMAB-DYYB
     Dosage: 400MG (7.5 MG/KG) EVERY 4 WEEKS (ROUNDED UP TO THE NEAREST VIAL)
     Route: 042
     Dates: start: 20200129
  2. INFLECTRA [Suspect]
     Active Substance: INFLIXIMAB-DYYB
     Dosage: 10 MG/KG OR 800 MG EVERY 4 WEEKS
     Route: 042
     Dates: start: 20200521
  3. INFLECTRA [Suspect]
     Active Substance: INFLIXIMAB-DYYB
     Dosage: 10 MG/KG OR 800 MG EVERY 4 WEEKS
     Route: 042
     Dates: start: 20201105, end: 20201105
  4. DIVALPROEX [Concomitant]
     Active Substance: DIVALPROEX SODIUM
     Dosage: 1250 MG, 1X/DAY
     Route: 048
  5. INFLECTRA [Suspect]
     Active Substance: INFLIXIMAB-DYYB
     Dosage: 400 MG (7.5 MG/KG) EVERY 4 WEEKS (ROUNDED UP TO THE NEAREST VIAL)
     Route: 042
     Dates: start: 20191106, end: 20200227
  6. INFLECTRA [Suspect]
     Active Substance: INFLIXIMAB-DYYB
     Dosage: 10 MG/KG OR 800 MG EVERY 4 WEEKS
     Route: 042
     Dates: start: 20200331, end: 20201105
  7. INFLECTRA [Suspect]
     Active Substance: INFLIXIMAB-DYYB
     Dosage: 10 MG/KG OR 800 MG EVERY 4 WEEKS
     Route: 042
     Dates: start: 20200618
  8. INFLECTRA [Suspect]
     Active Substance: INFLIXIMAB-DYYB
     Dosage: 10 MG/KG OR 800 MG EVERY 4 WEEKS
     Route: 042
     Dates: start: 20201008
  9. AMITRIPTYLINE [Concomitant]
     Active Substance: AMITRIPTYLINE
     Dosage: 10 MG, 1X/DAY
     Route: 048
  10. PREGABALIN. [Concomitant]
     Active Substance: PREGABALIN
     Dosage: 150 MG, 2X/DAY
     Route: 048
  11. INFLECTRA [Suspect]
     Active Substance: INFLIXIMAB-DYYB
     Dosage: 400MG (7.5 MG/KG) EVERY 4 WEEKS (ROUNDED UP TO THE NEAREST VIAL)
     Route: 042
     Dates: start: 20200227
  12. CORTIMENT [BUDESONIDE] [Concomitant]
     Active Substance: BUDESONIDE
     Dosage: UNK
     Route: 065
     Dates: start: 202003
  13. METHYLPREDNISOLONE. [Concomitant]
     Active Substance: METHYLPREDNISOLONE
     Dosage: 30 MG, 2X/DAY
     Route: 042
     Dates: start: 20190318
  14. SALOFALK [MESALAZINE] [Concomitant]
     Active Substance: MESALAMINE
     Dosage: ENEMA, 2X/DAY IN HOSPITAL
     Route: 065
     Dates: start: 201903
  15. INFLECTRA [Suspect]
     Active Substance: INFLIXIMAB-DYYB
     Dosage: 300 MG (5 MG/KG), EVERY 0, 2, 6 WEEKS THEN EVERY 8 WEEKS
     Route: 042
     Dates: start: 20190703
  16. INFLECTRA [Suspect]
     Active Substance: INFLIXIMAB-DYYB
     Dosage: 10 MG/KG OR 800 MG EVERY 4 WEEKS
     Route: 042
     Dates: start: 20200331
  17. INFLECTRA [Suspect]
     Active Substance: INFLIXIMAB-DYYB
     Dosage: 10 MG/KG OR 800 MG EVERY 4 WEEKS
     Route: 042
     Dates: start: 20200715
  18. INFLECTRA [Suspect]
     Active Substance: INFLIXIMAB-DYYB
     Dosage: 300 MG (5 MG/KG), EVERY 0, 2, 6 WEEKS THEN EVERY 8 WEEKS
     Route: 042
     Dates: start: 20190509
  19. INFLECTRA [Suspect]
     Active Substance: INFLIXIMAB-DYYB
     Dosage: 300 MG (5 MG/KG), EVERY 0, 2, 6 WEEKS THEN EVERY 8 WEEKS
     Route: 042
     Dates: start: 20190828
  20. INFLECTRA [Suspect]
     Active Substance: INFLIXIMAB-DYYB
     Dosage: 400 MG (7.5 MG/KG) EVERY 4 WEEKS (ROUNDED UP TO THE NEAREST VIAL)
     Route: 042
     Dates: start: 20200104
  21. INFLECTRA [Suspect]
     Active Substance: INFLIXIMAB-DYYB
     Dosage: 400MG (7.5 MG/KG) EVERY 4 WEEKS (ROUNDED UP TO THE NEAREST VIAL)
     Route: 042
     Dates: start: 20200104
  22. INFLECTRA [Suspect]
     Active Substance: INFLIXIMAB-DYYB
     Indication: COLITIS ULCERATIVE
     Dosage: 300 MG (5 MG/KG), EVERY 0, 2, 6 WEEKS THEN EVERY 8 WEEKS
     Route: 042
     Dates: start: 20190328, end: 20190828
  23. INFLECTRA [Suspect]
     Active Substance: INFLIXIMAB-DYYB
     Dosage: 300 MG (5 MG/KG), EVERY 0, 2, 6 WEEKS THEN EVERY 8 WEEKS
     Route: 042
     Dates: start: 20190411
  24. INFLECTRA [Suspect]
     Active Substance: INFLIXIMAB-DYYB
     Dosage: 400 MG (7.5 MG/KG) EVERY 4 WEEKS (ROUNDED UP TO THE NEAREST VIAL)
     Route: 042
     Dates: start: 20191106
  25. INFLECTRA [Suspect]
     Active Substance: INFLIXIMAB-DYYB
     Dosage: 400 MG (7.5 MG/KG) EVERY 4 WEEKS (ROUNDED UP TO THE NEAREST VIAL)
     Route: 042
     Dates: start: 20191203
  26. INFLECTRA [Suspect]
     Active Substance: INFLIXIMAB-DYYB
     Dosage: 10 MG/KG OR 800 MG EVERY 4 WEEKS
     Route: 042
     Dates: start: 20200427

REACTIONS (28)
  - Hepatic enzyme increased [Not Recovered/Not Resolved]
  - Mood altered [Unknown]
  - Nausea [Unknown]
  - Disturbance in attention [Unknown]
  - Fear of injection [Unknown]
  - Drug level below therapeutic [Not Recovered/Not Resolved]
  - Hepatic pain [Unknown]
  - Gait disturbance [Unknown]
  - Inappropriate schedule of product administration [Unknown]
  - Blood pressure decreased [Unknown]
  - Faecal calprotectin increased [Not Recovered/Not Resolved]
  - Fatigue [Unknown]
  - Product use issue [Unknown]
  - Incorrect dose administered [Unknown]
  - Fibromyalgia [Unknown]
  - Anxiety [Unknown]
  - Eating disorder [Unknown]
  - Off label use [Unknown]
  - Lower respiratory tract infection [Not Recovered/Not Resolved]
  - Condition aggravated [Unknown]
  - Drug level above therapeutic [Unknown]
  - Abdominal pain upper [Unknown]
  - Malaise [Unknown]
  - Underdose [Unknown]
  - Liver function test increased [Unknown]
  - Dysmenorrhoea [Unknown]
  - Bronchitis [Recovered/Resolved]
  - Pain [Unknown]

NARRATIVE: CASE EVENT DATE: 20190509
